FAERS Safety Report 7511652-1 (Version None)
Quarter: 2011Q2

REPORT INFORMATION
  Report Type: 
  Country: None (occurrence: None)
  Receive Date: 20110531
  Receipt Date: 20110524
  Transmission Date: 20111010
  Serious: Yes (Other)
  Sender: FDA-Public Use
  Company Number: US-PFIZER INC-2011086539

PATIENT
  Age: 59 Year
  Sex: Male

DRUGS (5)
  1. STARLIX [Concomitant]
     Dosage: 60 MG, UNK
  2. GLUCOPHAGE [Concomitant]
     Dosage: 500 MG, UNK
  3. BENICAR HCT [Concomitant]
     Dosage: [OLMESARTAN 20 MG/ HYDROCHLOROTHIAZIDE 12.5 MG]
  4. LIPITOR [Suspect]
     Dosage: 10 MG, DAILY
     Dates: start: 20090924, end: 20110101
  5. PROTONIX [Concomitant]
     Dosage: 40 MG, UNK

REACTIONS (2)
  - BLOOD GLUCOSE INCREASED [None]
  - GLYCOSYLATED HAEMOGLOBIN INCREASED [None]
